FAERS Safety Report 5687449-4 (Version None)
Quarter: 2008Q1

REPORT INFORMATION
  Report Type: 
  Country: None (occurrence: None)
  Receive Date: 20080328
  Receipt Date: 20070913
  Transmission Date: 20080703
  Serious: Yes (Hospitalization)
  Sender: FDA-Public Use
  Company Number: US-BAYER-US-2007-013599

PATIENT
  Age: 33 Year
  Sex: Female
  Weight: 82 kg

DRUGS (7)
  1. MIRENA [Suspect]
     Indication: CONTRACEPTION
     Route: 015
     Dates: start: 20070320, end: 20070321
  2. AMOXICILLIN [Concomitant]
     Indication: PREMEDICATION
  3. VALIUM [Concomitant]
     Indication: PREMEDICATION
  4. IBUPROFEN [Concomitant]
     Indication: PREMEDICATION
  5. AMBIEN [Concomitant]
  6. LIPITOR [Concomitant]
  7. SINGULAIR [Concomitant]

REACTIONS (2)
  - PROCEDURAL PAIN [None]
  - UTERINE RUPTURE [None]
